FAERS Safety Report 13616454 (Version 3)
Quarter: 2017Q3

REPORT INFORMATION
  Report Type: Spontaneous
  Country: US (occurrence: US)
  Receive Date: 20170606
  Receipt Date: 20170713
  Transmission Date: 20171127
  Serious: Yes (Other)
  Sender: FDA-Public Use
  Company Number: US-ABBVIE-17K-163-1996220-00

PATIENT
  Age: 25 Year
  Sex: Female

DRUGS (1)
  1. HUMIRA [Suspect]
     Active Substance: ADALIMUMAB
     Indication: CROHN^S DISEASE
     Route: 058
     Dates: start: 201301, end: 201611

REACTIONS (10)
  - Exposure during pregnancy [Unknown]
  - Urinary retention [Not Recovered/Not Resolved]
  - Normal newborn [Unknown]
  - Cough [Recovered/Resolved]
  - Cystitis [Recovered/Resolved]
  - Pneumothorax [Recovered/Resolved]
  - Hodgkin^s disease stage IV [Not Recovered/Not Resolved]
  - Neoplasm malignant [Unknown]
  - Paraplegia [Recovering/Resolving]
  - Myelitis transverse [Recovering/Resolving]

NARRATIVE: CASE EVENT DATE: 201608
